FAERS Safety Report 18177294 (Version 1)
Quarter: 2020Q3

REPORT INFORMATION
  Report Type: Spontaneous
  Country: DE (occurrence: DE)
  Receive Date: 20200820
  Receipt Date: 20200820
  Transmission Date: 20201103
  Serious: Yes (Death, Hospitalization, Other)
  Sender: FDA-Public Use
  Company Number: DE-SA-2020SA186133

PATIENT

DRUGS (3)
  1. JEVTANA [Suspect]
     Active Substance: CABAZITAXEL
     Dosage: UNK
     Route: 042
     Dates: start: 20200703, end: 20200703
  2. LONQUEX [Concomitant]
     Active Substance: LIPEGFILGRASTIM
     Dosage: UNK
     Dates: start: 20200227, end: 20200227
  3. JEVTANA [Suspect]
     Active Substance: CABAZITAXEL
     Indication: PROSTATE CANCER METASTATIC
     Dosage: UNK
     Route: 042
     Dates: start: 20200227, end: 20200227

REACTIONS (12)
  - Blood creatinine increased [Unknown]
  - Prostate cancer metastatic [Fatal]
  - Anuria [Unknown]
  - Nausea [Unknown]
  - Acute kidney injury [Fatal]
  - Agitation [Unknown]
  - Abdominal distension [Unknown]
  - Prostate infection [Fatal]
  - Blood urine present [Unknown]
  - Urosepsis [Fatal]
  - Prostatic specific antigen decreased [Unknown]
  - Decreased appetite [Unknown]

NARRATIVE: CASE EVENT DATE: 20200305
